FAERS Safety Report 12741633 (Version 1)
Quarter: 2016Q3

REPORT INFORMATION
  Report Type: Spontaneous
  Country: US (occurrence: US)
  Receive Date: 20160913
  Receipt Date: 20160913
  Transmission Date: 20161109
  Serious: No
  Sender: FDA-Public Use
  Company Number: None

PATIENT
  Age: 20 Year
  Sex: Female

DRUGS (4)
  1. PROZAC [Concomitant]
     Active Substance: FLUOXETINE HYDROCHLORIDE
  2. VIVITROL [Suspect]
     Active Substance: NALTREXONE
     Indication: DEPENDENCE
     Dosage: Q28 DAYS   IN THE MUSCLE
     Route: 028
     Dates: start: 20160817
  3. VIVITROL [Suspect]
     Active Substance: NALTREXONE
     Indication: PROPHYLAXIS
     Dosage: Q28 DAYS   IN THE MUSCLE
     Route: 028
     Dates: start: 20160817
  4. VIVITROL [Suspect]
     Active Substance: NALTREXONE
     Indication: DRUG DEPENDENCE
     Dosage: Q28 DAYS   IN THE MUSCLE
     Route: 028
     Dates: start: 20160817

REACTIONS (4)
  - Fatigue [None]
  - Headache [None]
  - Insomnia [None]
  - Asthenia [None]

NARRATIVE: CASE EVENT DATE: 201608
